FAERS Safety Report 9190652 (Version 2)
Quarter: 2013Q2

REPORT INFORMATION
  Report Type: Spontaneous
  Country: JP (occurrence: JP)
  Receive Date: 20130326
  Receipt Date: 20130611
  Transmission Date: 20140414
  Serious: Yes (Hospitalization)
  Sender: FDA-Public Use
  Company Number: JP-PFIZER INC-2013093733

PATIENT
  Age: 8 Decade
  Sex: Male

DRUGS (4)
  1. GABAPEN [Suspect]
     Indication: PAIN IN EXTREMITY
     Dosage: 1600 MG, 1X/DAY
     Route: 048
  2. MORPHINE HYDROCHLORIDE [Suspect]
     Indication: PAIN IN EXTREMITY
     Dosage: 60 MG, 1X/DAY
  3. FENTANYL [Suspect]
     Indication: PAIN IN EXTREMITY
     Dosage: 8.4 MG, EVERY THREE DAYS
     Route: 062
  4. BACLOFEN [Suspect]
     Dosage: 30 MG, 1X/DAY

REACTIONS (2)
  - Altered state of consciousness [Recovered/Resolved]
  - Dyskinesia [Recovered/Resolved]
